FAERS Safety Report 21420942 (Version 1)
Quarter: 2022Q4

REPORT INFORMATION
  Report Type: Other
  Country: None (occurrence: US)
  Receive Date: 20221007
  Receipt Date: 20221007
  Transmission Date: 20230113
  Serious: Yes (Hospitalization)
  Sender: FDA-Public Use
  Company Number: US-Ajanta Pharma USA Inc.-2133541

PATIENT
  Age: 39 Year
  Sex: Female

DRUGS (8)
  1. CLONIDINE HYDROCHLORIDE [Suspect]
     Active Substance: CLONIDINE HYDROCHLORIDE
     Indication: Anxiety
  2. BUPROPION [Suspect]
     Active Substance: BUPROPION
  3. DESVENLAFAXINE [Suspect]
     Active Substance: DESVENLAFAXINE
  4. YOHIMBINE [Suspect]
     Active Substance: YOHIMBINE
  5. BUPRENORPHINE AND NALOXONE [Concomitant]
     Active Substance: BUPRENORPHINE HYDROCHLORIDE\NALOXONE HYDROCHLORIDE
  6. LISDEXAMFETAMINE [Concomitant]
     Active Substance: LISDEXAMFETAMINE
  7. TRAZODONE [Concomitant]
     Active Substance: TRAZODONE HYDROCHLORIDE
  8. LEVONORGESTREL [Concomitant]
     Active Substance: LEVONORGESTREL

REACTIONS (3)
  - Haemorrhage intracranial [Not Recovered/Not Resolved]
  - Hypertensive emergency [Recovered/Resolved]
  - Drug interaction [Recovered/Resolved]
